FAERS Safety Report 6469842-5 (Version None)
Quarter: 2009Q4

REPORT INFORMATION
  Report Type: 
  Country: None (occurrence: None)
  Receive Date: 20091203
  Receipt Date: 20080912
  Transmission Date: 20100525
  Serious: Yes (Other)
  Sender: FDA-Public Use
  Company Number: GB-ELI_LILLY_AND_COMPANY-GB200712004652

PATIENT
  Sex: Male
  Weight: 70 kg

DRUGS (1)
  1. CIALIS [Suspect]
     Indication: ERECTILE DYSFUNCTION
     Dosage: 10 MG, UNKNOWN
     Route: 048
     Dates: start: 20070228, end: 20070228

REACTIONS (1)
  - DEEP VEIN THROMBOSIS [None]
